FAERS Safety Report 6759729-2 (Version None)
Quarter: 2010Q2

REPORT INFORMATION
  Report Type: 
  Country: None (occurrence: None)
  Receive Date: 20100604
  Receipt Date: 20100602
  Transmission Date: 20101027
  Serious: Yes (Hospitalization)
  Sender: FDA-Public Use
  Company Number: 004112

PATIENT
  Sex: Female
  Weight: 64 kg

DRUGS (1)
  1. CERTOLIZUMA# PEGOL (CERTOLIZUMAB PEGOL) [Suspect]
     Indication: CROHN'S DISEASE
     Dosage: (400 MG  1X/2 WEEKS SUBCUTANEOUS), (400 MG 1X/MONTH SUBCUTANEOUS)
     Route: 058
     Dates: start: 20090409

REACTIONS (3)
  - BAND NEUTROPHIL COUNT INCREASED [None]
  - GASTROENTERITIS [None]
  - IMMUNOSUPPRESSION [None]
